FAERS Safety Report 7317371-9 (Version None)
Quarter: 2011Q1

REPORT INFORMATION
  Report Type: 
  Country: None (occurrence: None)
  Receive Date: 20110226
  Receipt Date: 20101028
  Transmission Date: 20110831
  Serious: No
  Sender: FDA-Public Use
  Company Number: US-ALLERGAN-1013916US

PATIENT
  Age: 60 Year
  Sex: Female

DRUGS (3)
  1. PREVACID [Concomitant]
     Indication: GASTROINTESTINAL DISORDER
     Dosage: UNK
  2. AMBIEN [Concomitant]
     Indication: SLEEP DISORDER
     Dosage: UNK
  3. BOTOX COSMETIC [Suspect]
     Indication: SKIN WRINKLING
     Dosage: 30 UNITS, SINGLE
     Route: 030
     Dates: start: 20100929, end: 20100929

REACTIONS (3)
  - VISION BLURRED [None]
  - HEADACHE [None]
  - DIPLOPIA [None]
